FAERS Safety Report 15263024 (Version 4)
Quarter: 2018Q4

REPORT INFORMATION
  Report Type: Report from Study
  Country: US (occurrence: US)
  Receive Date: 20180810
  Receipt Date: 20181009
  Transmission Date: 20190204
  Serious: Yes (Hospitalization)
  Sender: FDA-Public Use
  Company Number: US-ALEXION PHARMACEUTICALS INC.-A201810251

PATIENT
  Age: 29 Year
  Sex: Male

DRUGS (6)
  1. KANUMA [Suspect]
     Active Substance: SEBELIPASE ALFA
     Dosage: UNK
     Route: 058
     Dates: start: 20180720
  2. RANITIDINE. [Concomitant]
     Active Substance: RANITIDINE
     Indication: PREMEDICATION
     Dosage: 300 MG, Q2W
     Route: 048
  3. CETIRIZINE [Concomitant]
     Active Substance: CETIRIZINE HYDROCHLORIDE
     Indication: PREMEDICATION
     Dosage: 10 MG, Q2W
     Route: 048
  4. PREDNISONE. [Concomitant]
     Active Substance: PREDNISONE
     Indication: PREMEDICATION
     Dosage: 80 MG, Q2W
     Route: 048
  5. KANUMA [Suspect]
     Active Substance: SEBELIPASE ALFA
     Indication: LYSOSOMAL ACID LIPASE DEFICIENCY
     Dosage: 1 MG/KG, Q2W
     Route: 058
     Dates: start: 20180329
  6. KANUMA [Suspect]
     Active Substance: SEBELIPASE ALFA
     Dosage: UNK
     Route: 058
     Dates: start: 20180804, end: 20180804

REACTIONS (1)
  - Anaphylactic reaction [Recovered/Resolved]

NARRATIVE: CASE EVENT DATE: 20180804
